FAERS Safety Report 8770531 (Version 1)
Quarter: 2012Q4

REPORT INFORMATION
  Report Type: 
  Country: AU (occurrence: AU)
  Receive Date: 20120906
  Receipt Date: 20120906
  Transmission Date: 20130627
  Serious: Yes (Life-Threatening, Disabling, Other)
  Sender: FDA-Public Use
  Company Number: AU-PFIZER INC-2012187345

PATIENT
  Age: 43 Year
  Sex: Female
  Weight: 55 kg

DRUGS (2)
  1. EFEXOR XR [Suspect]
     Indication: DEPRESSION
     Dosage: 75 mg, daily
     Route: 048
     Dates: start: 2002
  2. LAMICTAL [Concomitant]
     Dosage: 7.5 mg, UNK
     Dates: start: 2003, end: 2010

REACTIONS (5)
  - Impaired driving ability [Recovered/Resolved]
  - Alcohol abuse [Recovered/Resolved]
  - Loss of consciousness [Recovered/Resolved]
  - Abnormal behaviour [Recovered/Resolved]
  - Agitation [Recovering/Resolving]
